FAERS Safety Report 7296783-6 (Version None)
Quarter: 2011Q1

REPORT INFORMATION
  Report Type: 
  Country: None (occurrence: None)
  Receive Date: 20110216
  Receipt Date: 20110210
  Transmission Date: 20110831
  Serious: Yes (Hospitalization)
  Sender: FDA-Public Use
  Company Number: B0699019A

PATIENT
  Sex: Female

DRUGS (3)
  1. SOLUPRED [Concomitant]
     Dosage: 20MG PER DAY
     Route: 048
     Dates: start: 20110112, end: 20110114
  2. AUGMENTIN [Suspect]
     Dosage: 1G THREE TIMES PER DAY
     Route: 048
     Dates: start: 20110112, end: 20110118
  3. BIOCALYPTOL [Concomitant]
     Route: 048
     Dates: start: 20110112, end: 20110114

REACTIONS (10)
  - TOXIC SKIN ERUPTION [None]
  - LEUKOCYTOSIS [None]
  - HEPATOCELLULAR INJURY [None]
  - ORAL MUCOSA EROSION [None]
  - GAMMA-GLUTAMYLTRANSFERASE INCREASED [None]
  - PYREXIA [None]
  - FEELING HOT [None]
  - SKIN DISORDER [None]
  - BLISTER [None]
  - GENERALISED OEDEMA [None]
